FAERS Safety Report 5413272-1 (Version None)
Quarter: 2007Q3

REPORT INFORMATION
  Report Type: 
  Country: None (occurrence: None)
  Receive Date: 20070810
  Receipt Date: 20070727
  Transmission Date: 20080115
  Serious: Yes (Hospitalization)
  Sender: FDA-Public Use
  Company Number: 15389

PATIENT
  Age: 36 Year
  Sex: Female
  Weight: 66.3 kg

DRUGS (3)
  1. DACARBAZINE [Suspect]
     Indication: MALIGNANT MELANOMA STAGE IV
     Dosage: 1700 MG Q3W IV
     Route: 042
     Dates: start: 20060711
  2. BOSENTAN 500 MG BID OR PLACEBO (CODE NOT BROKEN) [Suspect]
     Indication: MALIGNANT MELANOMA STAGE IV
     Dosage: 500 MG BID PO
     Route: 048
     Dates: start: 20060711, end: 20070529
  3. LORAZEPAM [Concomitant]

REACTIONS (5)
  - ABDOMINAL PAIN [None]
  - MALIGNANT MELANOMA STAGE IV [None]
  - MALIGNANT NEOPLASM PROGRESSION [None]
  - NAUSEA [None]
  - VOMITING [None]
